FAERS Safety Report 8712930 (Version 3)
Quarter: 2012Q4

REPORT INFORMATION
  Report Type: 
  Country: US (occurrence: US)
  Receive Date: 20120808
  Receipt Date: 20121114
  Transmission Date: 20130627
  Serious: Yes (Hospitalization, Other)
  Sender: FDA-Public Use
  Company Number: US-NOVOPROD-357035

PATIENT
  Age: 22 Year
  Sex: Male
  Weight: 70.3 kg

DRUGS (2)
  1. NORDITROPIN FLEXPRO 10 MG/ML [Suspect]
     Indication: HYPOPITUITARISM
     Dosage: 0.9 mg, daily
     Route: 058
     Dates: start: 20100924
  2. NORDITROPIN FLEXPRO 10 MG/ML [Suspect]
     Dosage: 0.9 mg, qd
     Route: 058
     Dates: start: 20110516, end: 20120801

REACTIONS (1)
  - Primitive neuroectodermal tumour [Unknown]
